FAERS Safety Report 4518146-6 (Version None)
Quarter: 2004Q4

REPORT INFORMATION
  Report Type: 
  Country: None (occurrence: None)
  Receive Date: 20041130
  Receipt Date: 20041116
  Transmission Date: 20050328
  Serious: Yes (Other)
  Sender: FDA-Public Use
  Company Number: 2004093596

PATIENT
  Age: 51 Year
  Sex: Male

DRUGS (9)
  1. VIAGRA [Suspect]
     Indication: ILL-DEFINED DISORDER
  2. ERYTHROPOIETIN (ERYTHROPOIETIN) [Suspect]
     Indication: ANAEMIA
     Dosage: 40000 IU/ML (40000 IU/ML, 1 IN 1 WK), SUBCUTANEOUS
     Route: 058
     Dates: start: 20031010
  3. PEGINTERFERON ALFA-2A (PEGINTERFERON ALFA-2A) [Suspect]
     Indication: HEPATITIS C
     Dosage: (1 IN 1 WK), SUBCUTANEOUS
     Route: 058
     Dates: start: 20000801
  4. RIBAVIRIN [Suspect]
     Indication: HEPATITIS C
     Dosage: 1200 MG (1200 MG, 1 IN 1 D), ORAL
     Route: 048
     Dates: start: 20040801
  5. METOCLOPRAMIDE [Concomitant]
  6. CITALOPRAM HYDROBROMIDE [Concomitant]
  7. METHYLCELLULOSE (METHYLCELLULOSE) [Concomitant]
  8. MULTIVITAMINS (ASCORBIC ACID, ERGOCALCIFEROL, FOLIC ACID, NICOTINAMIDE [Concomitant]
  9. HYDROCHLOROTHIAZIDE [Concomitant]

REACTIONS (7)
  - ANTIBODY TEST POSITIVE [None]
  - APLASIA PURE RED CELL [None]
  - DEPRESSION [None]
  - HYPERTENSION [None]
  - INJECTION SITE SWELLING [None]
  - SYNCOPE [None]
  - THERAPEUTIC RESPONSE DECREASED [None]
